FAERS Safety Report 26091207 (Version 1)
Quarter: 2025Q4

REPORT INFORMATION
  Report Type: Spontaneous
  Country: US (occurrence: US)
  Receive Date: 20251126
  Receipt Date: 20251126
  Transmission Date: 20260117
  Serious: No
  Sender: TELIX PHARMACEUTICALS
  Company Number: US-TLX-2025000009

PATIENT
  Age: 67 Year
  Sex: Male
  Weight: 91.63 kg

DRUGS (1)
  1. ILLUCCIX [Suspect]
     Active Substance: GALLIUM GA-68 GOZETOTIDE
     Indication: Diagnostic procedure
     Dosage: REQUESTED:5.0MCI?DISPENSED:5.4MCI?VOLUME:5.7ML?CALIBR. TIME:10:00AM?GENERATOR AGE:2MTHS
     Route: 040
     Dates: start: 20250226, end: 20250226

REACTIONS (2)
  - Vomiting [Recovered/Resolved]
  - Injection site warmth [Recovered/Resolved]

NARRATIVE: CASE EVENT DATE: 20250226
